FAERS Safety Report 10936817 (Version 2)
Quarter: 2015Q2

REPORT INFORMATION
  Report Type: Spontaneous
  Country: US (occurrence: US)
  Receive Date: 20150321
  Receipt Date: 20150525
  Transmission Date: 20150821
  Serious: No
  Sender: FDA-Public Use
  Company Number: US-JNJFOC-20140210835

PATIENT

DRUGS (4)
  1. TOPIRAMATE. [Suspect]
     Active Substance: TOPIRAMATE
     Indication: SMOKING CESSATION THERAPY
     Dosage: FOR ONE WEEK
     Route: 065
  2. TOPIRAMATE. [Suspect]
     Active Substance: TOPIRAMATE
     Indication: SMOKING CESSATION THERAPY
     Dosage: FOR ONE WEEK.
     Route: 065
  3. TOPIRAMATE. [Suspect]
     Active Substance: TOPIRAMATE
     Indication: SMOKING CESSATION THERAPY
     Dosage: FOR 5 WEEKS
     Route: 065
  4. TOPIRAMATE. [Suspect]
     Active Substance: TOPIRAMATE
     Indication: SMOKING CESSATION THERAPY
     Route: 065

REACTIONS (3)
  - Weight decreased [Unknown]
  - Paraesthesia [Unknown]
  - Product use issue [Unknown]
